FAERS Safety Report 25179317 (Version 1)
Quarter: 2025Q2

REPORT INFORMATION
  Report Type: Spontaneous
  Country: US (occurrence: None)
  Receive Date: 20250408
  Receipt Date: 20250408
  Transmission Date: 20250717
  Serious: Yes (Death)
  Sender: FDA-CTU
  Company Number: None

PATIENT
  Sex: Male

DRUGS (9)
  1. EPIDIOLEX [Suspect]
     Active Substance: CANNABIDIOL
     Dosage: FREQUENCY : TWICE A DAY;?OTHER ROUTE : ENTERAL;?
     Route: 050
  2. Calcium 600mg [Concomitant]
  3. CETIRIZINE [Concomitant]
     Active Substance: CETIRIZINE HYDROCHLORIDE
  4. LEVETIRACETAM [Concomitant]
     Active Substance: LEVETIRACETAM
  5. Melatonin 2.5mg [Concomitant]
  6. VIGABATRIN [Concomitant]
     Active Substance: VIGABATRIN
  7. Baclofen 5mg [Concomitant]
  8. ONFI [Concomitant]
     Active Substance: CLOBAZAM
  9. GABAPENTIN [Concomitant]
     Active Substance: GABAPENTIN

REACTIONS (2)
  - Cardiac failure [None]
  - Respiratory failure [None]
